FAERS Safety Report 21063442 (Version 3)
Quarter: 2022Q4

REPORT INFORMATION
  Report Type: Spontaneous
  Country: US (occurrence: US)
  Receive Date: 20220711
  Receipt Date: 20221221
  Transmission Date: 20230112
  Serious: Yes (Death, Hospitalization)
  Sender: FDA-Public Use
  Company Number: US-JNJFOC-20220701336

PATIENT
  Age: 5 Decade
  Sex: Female

DRUGS (1)
  1. TYLENOL PM [Suspect]
     Active Substance: ACETAMINOPHEN\DIPHENHYDRAMINE
     Indication: Initial insomnia
     Dosage: 2 CAPLETS ONCE DURING BED TIME, STARTED 16 YEARS AGO
     Route: 048
     Dates: start: 2002, end: 20220304

REACTIONS (8)
  - Haemorrhage [Fatal]
  - Drug dependence [Fatal]
  - Renal disorder [Fatal]
  - Myocardial infarction [Fatal]
  - Hepatomegaly [Fatal]
  - Memory impairment [Fatal]
  - Organ failure [Fatal]
  - Cardiac failure [Fatal]

NARRATIVE: CASE EVENT DATE: 20190101
